FAERS Safety Report 4831893-1 (Version None)
Quarter: 2005Q4

REPORT INFORMATION
  Report Type: 
  Country: None (occurrence: None)
  Receive Date: 20051116
  Receipt Date: 20051103
  Transmission Date: 20060501
  Serious: Yes (Hospitalization)
  Sender: FDA-Public Use
  Company Number: 2005RR-01042

PATIENT
  Age: 6 Year
  Sex: Male

DRUGS (2)
  1. IBUPROFEN [Suspect]
     Indication: PYREXIA
     Dosage: 100 MG, 6 HOURLY, ORAL
     Route: 048
  2. PARACETAMOL (PARACETAMOL) [Suspect]
     Indication: PYREXIA
     Dosage: ORAL
     Route: 048

REACTIONS (11)
  - ACID BASE BALANCE ABNORMAL [None]
  - COAGULOPATHY [None]
  - DEHYDRATION [None]
  - ELECTROLYTE IMBALANCE [None]
  - HAEMORRHAGIC DIATHESIS [None]
  - NEPHRITIS INTERSTITIAL [None]
  - OEDEMA [None]
  - PLEURAL EFFUSION [None]
  - POST STREPTOCOCCAL GLOMERULONEPHRITIS [None]
  - RENAL FAILURE [None]
  - RENAL TUBULAR NECROSIS [None]
